FAERS Safety Report 5156718-9 (Version None)
Quarter: 2006Q4

REPORT INFORMATION
  Report Type: 
  Country: None (occurrence: None)
  Receive Date: 20061115
  Receipt Date: 20061104
  Transmission Date: 20070319
  Serious: Yes (Life-Threatening)
  Sender: FDA-Public Use
  Company Number: 06H-129-0311113-00

PATIENT
  Age: 8 Month
  Sex: Female

DRUGS (3)
  1. DEXMEDETOMIDINE                        (DEXMEDETOMIDINE HYDROCHLORIDE) [Suspect]
     Indication: SEDATION
     Dosage: 1 MCG/KG/HR, INTRAVENOUS
     Route: 042
     Dates: start: 20030101, end: 20030101
  2. FENTANYL [Concomitant]
  3. MIDAZOLAM HCL [Concomitant]

REACTIONS (3)
  - RESUSCITATION [None]
  - TORSADE DE POINTES [None]
  - VENTRICULAR TACHYCARDIA [None]
